FAERS Safety Report 5040806-1 (Version None)
Quarter: 2006Q2

REPORT INFORMATION
  Report Type: 
  Country: None (occurrence: None)
  Receive Date: 20060629
  Receipt Date: 20060629
  Transmission Date: 20061013
  Serious: Yes (Disabling)
  Sender: FDA-Public Use
  Company Number: None

PATIENT
  Age: 13 Month
  Sex: Female
  Weight: 8.3 kg

DRUGS (1)
  1. PHENYTOIN [Suspect]
     Indication: CONVULSION
     Dosage: 45MG   Q12HR    IV
     Route: 042
     Dates: start: 20060619, end: 20060627

REACTIONS (3)
  - CHOREA [None]
  - DYSTONIA [None]
  - SUDDEN ONSET OF SLEEP [None]
